FAERS Safety Report 7939389-5 (Version None)
Quarter: 2011Q4

REPORT INFORMATION
  Report Type: 
  Country: None (occurrence: None)
  Receive Date: 20111125
  Receipt Date: 20111107
  Transmission Date: 20120403
  Serious: Yes (Disabling, Other)
  Sender: FDA-Public Use
  Company Number: US-ROCHE-796387

PATIENT
  Sex: Male
  Weight: 97.7 kg

DRUGS (1)
  1. AVASTIN [Suspect]
     Indication: MACULAR OEDEMA
     Dosage: DOSE: 1.25 MG/0.05 ML FREQUENCY: EVERY 4-6 WEEKS
     Route: 050
     Dates: start: 20101102, end: 20110329

REACTIONS (5)
  - ENDOPHTHALMITIS [None]
  - EYE INFLAMMATION [None]
  - PRODUCT QUALITY ISSUE [None]
  - PRODUCT STERILITY LACKING [None]
  - BLINDNESS [None]
